FAERS Safety Report 6987766-1 (Version None)
Quarter: 2010Q3

REPORT INFORMATION
  Report Type: 
  Country: None (occurrence: None)
  Receive Date: 20100914
  Receipt Date: 20100902
  Transmission Date: 20110219
  Serious: Yes (Death, Hospitalization)
  Sender: FDA-Public Use
  Company Number: IDA-00429

PATIENT
  Age: 90 Year
  Sex: Male

DRUGS (10)
  1. PROPRANOLOL [Suspect]
     Indication: ESSENTIAL TREMOR
     Dosage: 20 MG, ORAL FORMULATION
     Route: 048
     Dates: end: 20100814
  2. ARICEPT [Concomitant]
  3. KARDEGIC (ACETYLSALICYLATE LYSINE) [Concomitant]
  4. FORLAX (MACROGEL) [Concomitant]
  5. POTASSIUM CHLORIDE [Concomitant]
  6. DIAFUSOR (GLYCERYL TRINITRATE) [Concomitant]
  7. CETORNAN (ORNITHINE OXOGLURATE) [Concomitant]
  8. OXAZEPAM [Concomitant]
  9. ESCITALOPRAM [Concomitant]
  10. ACETAMINOPHEN [Concomitant]

REACTIONS (6)
  - BRADYCARDIA [None]
  - COMA [None]
  - FALL [None]
  - MENINGORRHAGIA [None]
  - OPEN WOUND [None]
  - SUBDURAL HAEMATOMA [None]
